FAERS Safety Report 5224432-7 (Version None)
Quarter: 2007Q1

REPORT INFORMATION
  Report Type: 
  Country: None (occurrence: None)
  Receive Date: 20070130
  Receipt Date: 20070118
  Transmission Date: 20070707
  Serious: Yes (Other)
  Sender: FDA-Public Use
  Company Number: BR-PFIZER INC-2007000282

PATIENT
  Sex: Male

DRUGS (4)
  1. VIAGRA [Suspect]
     Indication: ERECTILE DYSFUNCTION
     Route: 048
  2. CARDIZEM [Suspect]
     Dates: start: 20061225, end: 20061229
  3. CIALIS [Suspect]
     Indication: ERECTILE DYSFUNCTION
     Route: 048
  4. SUSTRATE [Suspect]
     Dates: start: 20061225, end: 20061229

REACTIONS (5)
  - BLOOD PRESSURE INCREASED [None]
  - CHEST PAIN [None]
  - DIZZINESS [None]
  - LABYRINTHITIS [None]
  - MALAISE [None]
